FAERS Safety Report 8356261-X (Version None)
Quarter: 2012Q2

REPORT INFORMATION
  Report Type: 
  Country: None (occurrence: None)
  Receive Date: 20120510
  Receipt Date: 20120427
  Transmission Date: 20120825
  Serious: Yes (Other)
  Sender: FDA-Public Use
  Company Number: JPI-[-021172

PATIENT
  Age: 52 Year
  Sex: Female

DRUGS (1)
  1. XYREM [Suspect]
     Indication: CATAPLEXY
     Dosage: ORAL
     Route: 048
     Dates: start: 20090624

REACTIONS (8)
  - NASOPHARYNGITIS [None]
  - WEIGHT DECREASED [None]
  - FOOT FRACTURE [None]
  - MIGRAINE [None]
  - FALL [None]
  - POOR QUALITY SLEEP [None]
  - OSTEOPOROSIS [None]
  - LIGAMENT SPRAIN [None]
